FAERS Safety Report 13028686 (Version 4)
Quarter: 2018Q1

REPORT INFORMATION
  Report Type: Spontaneous
  Country: BR (occurrence: BR)
  Receive Date: 20161214
  Receipt Date: 20180112
  Transmission Date: 20180508
  Serious: Yes (Other)
  Sender: FDA-Public Use
  Company Number: BR-BIOMARINAP-BR-2016-111555

PATIENT
  Sex: Female

DRUGS (2)
  1. ESCITALOPRAM [Concomitant]
     Active Substance: ESCITALOPRAM OXALATE
     Indication: ANXIETY
     Dosage: 10 MG, QD
  2. NAGLAZYME [Suspect]
     Active Substance: GALSULFASE
     Indication: MUCOPOLYSACCHARIDOSIS VI
     Dosage: UNK UNK, QW
     Route: 042
     Dates: start: 20071221

REACTIONS (3)
  - Seizure [Recovering/Resolving]
  - Intentional product misuse [Unknown]
  - Epilepsy [Unknown]

NARRATIVE: CASE EVENT DATE: 2016
